FAERS Safety Report 22274780 (Version 1)
Quarter: 2023Q2

REPORT INFORMATION
  Report Type: Report from Study
  Country: US (occurrence: US)
  Receive Date: 20230502
  Receipt Date: 20230502
  Transmission Date: 20230721
  Serious: Yes (Other)
  Sender: FDA-Public Use
  Company Number: US-ABBVIE-4747819

PATIENT

DRUGS (1)
  1. LUPRON DEPOT [Suspect]
     Active Substance: LEUPROLIDE ACETATE
     Indication: Precocious puberty

REACTIONS (9)
  - Recurrent cancer [Unknown]
  - Urinary tract injury [Unknown]
  - Eye injury [Unknown]
  - Uterine leiomyoma [Unknown]
  - Alopecia [Unknown]
  - Cardiovascular disorder [Unknown]
  - Tooth injury [Unknown]
  - Nerve injury [Unknown]
  - Multi-organ disorder [Unknown]
